FAERS Safety Report 10235400 (Version 1)
Quarter: 2014Q2

REPORT INFORMATION
  Report Type: Spontaneous
  Country: US (occurrence: US)
  Receive Date: 20140613
  Receipt Date: 20140613
  Transmission Date: 20141212
  Serious: Yes (Other)
  Sender: FDA-Public Use
  Company Number: US-RB-066604-14

PATIENT
  Age: 14 Year
  Sex: Male

DRUGS (1)
  1. MUCINEX DM MAXIMUMSTRENGTH [Suspect]
     Indication: NASOPHARYNGITIS
     Dosage: TOTAL USED 4 TABLETS: LAST USED THE PRODUCT ON 03-JUN-2014
     Route: 048
     Dates: start: 20140601

REACTIONS (5)
  - Confusional state [Not Recovered/Not Resolved]
  - Tremor [Not Recovered/Not Resolved]
  - Fatigue [Not Recovered/Not Resolved]
  - Headache [Not Recovered/Not Resolved]
  - Dizziness [Not Recovered/Not Resolved]
